FAERS Safety Report 23676504 (Version 1)
Quarter: 2024Q1

REPORT INFORMATION
  Report Type: Spontaneous
  Country: FR (occurrence: FR)
  Receive Date: 20240327
  Receipt Date: 20240327
  Transmission Date: 20240410
  Serious: Yes (Other)
  Sender: FDA-Public Use
  Company Number: None

PATIENT
  Age: 26 Year
  Sex: Female

DRUGS (6)
  1. DOXORUBICIN [Suspect]
     Active Substance: DOXORUBICIN
     Dosage: 1 DAY
     Route: 042
     Dates: start: 20210913, end: 20210913
  2. CYCLOPHOSPHAMIDE [Suspect]
     Active Substance: CYCLOPHOSPHAMIDE
     Dosage: 1 DAY
     Route: 042
     Dates: start: 20210913, end: 20210913
  3. MESNA [Suspect]
     Active Substance: MESNA
     Dosage: 1 DAY
     Route: 065
     Dates: start: 20210913, end: 20210913
  4. SOLU-MEDROL [Suspect]
     Active Substance: METHYLPREDNISOLONE SODIUM SUCCINATE
     Dosage: 1 DAY
     Route: 065
     Dates: start: 20210913, end: 20210913
  5. PROCARBAZINE [Suspect]
     Active Substance: PROCARBAZINE
     Dosage: 1 DAY
     Route: 042
     Dates: start: 20210913, end: 20210913
  6. ETOPOSIDE [Suspect]
     Active Substance: ETOPOSIDE
     Dosage: UNK, 1 DAY
     Route: 042
     Dates: start: 20210913, end: 20210913

REACTIONS (1)
  - Urticaria [Not Recovered/Not Resolved]

NARRATIVE: CASE EVENT DATE: 20210914
